FAERS Safety Report 7490499-9 (Version None)
Quarter: 2011Q2

REPORT INFORMATION
  Report Type: 
  Country: None (occurrence: None)
  Receive Date: 20110512
  Receipt Date: 20110504
  Transmission Date: 20111010
  Serious: Yes (Hospitalization)
  Sender: FDA-Public Use
  Company Number: 911114

PATIENT
  Age: 67 Year
  Sex: Female

DRUGS (2)
  1. GENTAMICIN SULFATE [Suspect]
     Indication: CHOLECYSTITIS ACUTE
  2. CEFOTAXIME [Concomitant]

REACTIONS (6)
  - HYPOKALAEMIA [None]
  - RENAL TUBULAR DISORDER [None]
  - HYPOCALCAEMIA [None]
  - ENCEPHALOPATHY [None]
  - STATUS EPILEPTICUS [None]
  - HYPOMAGNESAEMIA [None]
